FAERS Safety Report 4779583-8 (Version None)
Quarter: 2005Q3

REPORT INFORMATION
  Report Type: 
  Country: None (occurrence: None)
  Receive Date: 20050927
  Receipt Date: 20050916
  Transmission Date: 20060218
  Serious: Yes (Hospitalization)
  Sender: FDA-Public Use
  Company Number: JP-JNJFOC-20050904610

PATIENT
  Sex: Female
  Weight: 48 kg

DRUGS (15)
  1. REMICADE [Suspect]
     Route: 042
  2. REMICADE [Suspect]
     Route: 042
  3. REMICADE [Suspect]
     Route: 042
  4. REMICADE [Suspect]
     Route: 042
  5. REMICADE [Suspect]
     Route: 042
  6. REMICADE [Suspect]
     Indication: CROHN'S DISEASE
     Route: 042
  7. PENTASA [Concomitant]
     Indication: CROHN'S DISEASE
     Route: 048
  8. GASTER [Concomitant]
     Indication: CROHN'S DISEASE
     Route: 048
  9. GASCON [Concomitant]
     Indication: CROHN'S DISEASE
     Route: 048
  10. MARZULENE S [Concomitant]
     Route: 048
  11. MARZULENE S [Concomitant]
     Route: 048
  12. LAC B [Concomitant]
     Route: 048
  13. BIO THREE [Concomitant]
     Indication: CROHN'S DISEASE
     Route: 048
  14. SOLU-CORTEF [Concomitant]
  15. POLARAMINE [Concomitant]

REACTIONS (3)
  - BLOOD PRESSURE DECREASED [None]
  - DISSEMINATED INTRAVASCULAR COAGULATION [None]
  - SEPSIS [None]
